FAERS Safety Report 8105793-8 (Version None)
Quarter: 2012Q1

REPORT INFORMATION
  Report Type: 
  Country: None (occurrence: None)
  Receive Date: 20120201
  Receipt Date: 20120127
  Transmission Date: 20120608
  Serious: Yes (Hospitalization)
  Sender: FDA-Public Use
  Company Number: FR-ABBOTT-12P-056-0899324-00

PATIENT
  Age: 37 Year
  Sex: Male

DRUGS (1)
  1. DEPAKENE [Suspect]
     Indication: PRODUCT USED FOR UNKNOWN INDICATION
     Route: 048
     Dates: end: 20111227

REACTIONS (5)
  - AGITATION [None]
  - ENCEPHALOPATHY [None]
  - HALLUCINATION [None]
  - DRUG LEVEL INCREASED [None]
  - CONFUSIONAL STATE [None]
